FAERS Safety Report 7619057-X (Version None)
Quarter: 2011Q3

REPORT INFORMATION
  Report Type: 
  Country: None (occurrence: None)
  Receive Date: 20110718
  Receipt Date: 20110708
  Transmission Date: 20111222
  Serious: Yes (Other)
  Sender: FDA-Public Use
  Company Number: GB-ASTRAZENECA-2011SE40753

PATIENT
  Age: 75 Year
  Sex: Male
  Weight: 90 kg

DRUGS (6)
  1. BISOPROLOL [Concomitant]
     Route: 048
     Dates: start: 20060101
  2. CRESTOR [Suspect]
     Indication: HYPERCHOLESTEROLAEMIA
     Route: 048
     Dates: start: 20110101
  3. CITALOPRAM HYDROBROMIDE [Concomitant]
     Route: 048
     Dates: start: 20060101
  4. ASPIRIN [Concomitant]
     Route: 048
     Dates: start: 20060101
  5. DUTASTERIDE [Concomitant]
     Route: 048
     Dates: start: 20060101
  6. LIPITOR [Suspect]
     Indication: HYPERCHOLESTEROLAEMIA
     Dates: start: 20060101, end: 20110101

REACTIONS (4)
  - SLEEP TALKING [None]
  - POOR QUALITY SLEEP [None]
  - NIGHTMARE [None]
  - AGGRESSION [None]
